FAERS Safety Report 4401363-3 (Version None)
Quarter: 2004Q3

REPORT INFORMATION
  Report Type: 
  Country: None (occurrence: None)
  Receive Date: 20040907
  Receipt Date: 20040324
  Transmission Date: 20050211
  Serious: No
  Sender: FDA-Public Use
  Company Number: US-BRISTOL-MYERS SQUIBB COMPANY-12540886

PATIENT
  Age: 62 Year
  Sex: Female
  Weight: 86 kg

DRUGS (4)
  1. COUMADIN [Suspect]
     Indication: FACTOR II DEFICIENCY
     Dosage: STOPPED FOR THREE DAYS. 3/26-28/04= 2MG OD; 3/30-31/04= 2.5MG OD.
     Route: 048
     Dates: start: 19991201
  2. SYNTHROID [Concomitant]
  3. HYDROCORTISONE [Concomitant]
  4. ATENOLOL [Concomitant]

REACTIONS (1)
  - INTERNATIONAL NORMALISED RATIO ABNORMAL [None]
